FAERS Safety Report 19742780 (Version 1)
Quarter: 2021Q3

REPORT INFORMATION
  Report Type: Spontaneous
  Country: US (occurrence: US)
  Receive Date: 20210824
  Receipt Date: 20210824
  Transmission Date: 20211014
  Serious: Yes (Hospitalization)
  Sender: FDA-Public Use
  Company Number: US-GILEAD-2021-0545423

PATIENT
  Age: 4 Decade
  Sex: Male

DRUGS (1)
  1. VEKLURY [Suspect]
     Active Substance: REMDESIVIR
     Indication: COVID-19
     Dosage: UNK
     Route: 065

REACTIONS (3)
  - Feeling abnormal [Unknown]
  - COVID-19 [Unknown]
  - Dyspnoea [Unknown]

NARRATIVE: CASE EVENT DATE: 2021
